FAERS Safety Report 20995781 (Version 4)
Quarter: 2024Q2

REPORT INFORMATION
  Report Type: Spontaneous
  Country: PL (occurrence: PL)
  Receive Date: 20220623
  Receipt Date: 20240529
  Transmission Date: 20240715
  Serious: Yes (Disabling)
  Sender: FDA-Public Use
  Company Number: PL-BAUSCH-BL-2022-013266

PATIENT
  Age: 51 Year
  Sex: Female

DRUGS (8)
  1. ALPRAZOLAM [Suspect]
     Active Substance: ALPRAZOLAM
     Indication: Depression
     Dosage: 0.5 MILLIGRAM, TWO TIMES A DAY
     Route: 065
  2. ALPRAZOLAM [Suspect]
     Active Substance: ALPRAZOLAM
     Dosage: 1 MILLIGRAM, ONCE A DAY (0.5 MG, 2X PER DAY )
     Route: 065
  3. SERTRALINE [Suspect]
     Active Substance: SERTRALINE HYDROCHLORIDE
     Indication: Depression
     Dosage: UNK (AFTER 2 WEEKS THE DOSE WAS INCREASED TO 100 MG/DAY)
     Route: 065
  4. SERTRALINE [Suspect]
     Active Substance: SERTRALINE HYDROCHLORIDE
     Dosage: 50 MILLIGRAM, ONCE A DAY (IN THE MORNING)
     Route: 065
  5. SERTRALINE [Suspect]
     Active Substance: SERTRALINE HYDROCHLORIDE
     Dosage: 100 MILLIGRAM, ONCE A DAY (50 MILLIGRAM, ONCE A DAY (100 MG, PER DAY IN THE MORNING))
     Route: 065
  6. HYDROXYZINE [Suspect]
     Active Substance: HYDROXYZINE HYDROCHLORIDE
     Indication: Salivary hypersecretion
     Dosage: 50 MILLIGRAM, TWO TIMES A DAY (100 MILLIGRAM, ONCE A DAY)
     Route: 065
  7. HYDROXYZINE [Suspect]
     Active Substance: HYDROXYZINE HYDROCHLORIDE
     Indication: Drooling
  8. MIANSERIN [Suspect]
     Active Substance: MIANSERIN
     Indication: Depression
     Dosage: 30 MILLIGRAM AT NIGHT
     Route: 065

REACTIONS (9)
  - Dysarthria [Recovered/Resolved]
  - Impaired work ability [Recovered/Resolved]
  - Impaired quality of life [Unknown]
  - Somnolence [Recovered/Resolved]
  - Drug interaction [Recovered/Resolved]
  - Therapy non-responder [Unknown]
  - Salivary hypersecretion [Recovered/Resolved]
  - Loss of personal independence in daily activities [Unknown]
  - Labelled drug-drug interaction issue [Recovering/Resolving]
